FAERS Safety Report 7032149-1 (Version None)
Quarter: 2010Q4

REPORT INFORMATION
  Report Type: 
  Country: None (occurrence: None)
  Receive Date: 20101005
  Receipt Date: 20100924
  Transmission Date: 20110411
  Serious: Yes (Hospitalization)
  Sender: FDA-Public Use
  Company Number: DSU-2010-05068

PATIENT
  Age: 48 Year
  Sex: Male
  Weight: 87.0906 kg

DRUGS (7)
  1. BENICAR [Suspect]
     Indication: HYPERTENSION
     Dosage: 40 MG (20 MG, BID), PER ORAL
     Route: 048
  2. NEORAL (CICLOSPORIN) (75 MILLIGRAM) (CICLOSPORIN) [Concomitant]
  3. PREDNISONE (PREDNISONE) (5 MILLIGRAM) (PREDNISONE) [Concomitant]
  4. IMURAN (AZATHIOPRINE) (50 MILLIGRAM) (AZATHIOPRINE) [Concomitant]
  5. ALLOPURINOL (ALLOPURINOL) (300 MILLIGRAM) (ALLOPURINOL) [Concomitant]
  6. LIPITOR (ATORVASTATIN CALCIUM) (20 MILLIGRAM) (ATORVASTATIN CALCIUM) [Concomitant]
  7. LOTREL (AMLODIPINE, BENAZEPRIL HYDROCHLORIDE) (20 MILLIGRAM) (AMLODIPI [Concomitant]

REACTIONS (4)
  - ANAEMIA [None]
  - CERVICAL VERTEBRAL FRACTURE [None]
  - COMA [None]
  - ROAD TRAFFIC ACCIDENT [None]
